FAERS Safety Report 9643585 (Version 1)
Quarter: 2013Q4

REPORT INFORMATION
  Report Type: Spontaneous
  Country: US (occurrence: US)
  Receive Date: 20131024
  Receipt Date: 20131024
  Transmission Date: 20140711
  Serious: Yes (Death)
  Sender: FDA-Public Use
  Company Number: US-GLAXOSMITHKLINE-A1046532A

PATIENT
  Age: 53 Year
  Sex: Female

DRUGS (7)
  1. VOTRIENT [Suspect]
     Indication: SOFT TISSUE CANCER
     Dosage: 200MG PER DAY
     Route: 048
     Dates: start: 20130925
  2. TYLENOL [Concomitant]
  3. FUROSEMIDE [Concomitant]
  4. SENNA [Concomitant]
  5. SPIRONOLACTONE [Concomitant]
  6. OMEPRAZOLE [Concomitant]
  7. METOPROLOL [Concomitant]

REACTIONS (1)
  - Disease progression [Fatal]
